FAERS Safety Report 10193422 (Version 1)
Quarter: 2014Q2

REPORT INFORMATION
  Report Type: Spontaneous
  Country: US (occurrence: US)
  Receive Date: 20140524
  Receipt Date: 20140524
  Transmission Date: 20141212
  Serious: No
  Sender: FDA-Public Use
  Company Number: US-SA-2014SA003062

PATIENT
  Age: 77 Year
  Sex: Female
  Weight: 63.5 kg

DRUGS (2)
  1. SOLOSTAR [Suspect]
     Dosage: DOSE:22 UNIT(S)
     Route: 051
  2. LANTUS SOLOSTAR [Suspect]
     Dosage: DOSE:22 UNIT(S)
     Route: 051

REACTIONS (3)
  - Asthenia [Unknown]
  - Hyperhidrosis [Unknown]
  - Drug dose omission [Unknown]
